FAERS Safety Report 19672795 (Version 3)
Quarter: 2021Q4

REPORT INFORMATION
  Report Type: Report from Study
  Country: US (occurrence: US)
  Receive Date: 20210809
  Receipt Date: 20211210
  Transmission Date: 20220303
  Serious: No
  Sender: FDA-Public Use
  Company Number: NVSC2021US151006

PATIENT
  Age: 59 Year
  Sex: Female

DRUGS (1)
  1. COSENTYX [Suspect]
     Active Substance: SECUKINUMAB
     Indication: Psoriatic arthropathy
     Dosage: 300 MG, QMO
     Route: 058
     Dates: start: 2019

REACTIONS (8)
  - Dermatitis contact [Unknown]
  - Cough [Not Recovered/Not Resolved]
  - Psoriasis [Recovering/Resolving]
  - Rash [Not Recovered/Not Resolved]
  - Skin exfoliation [Recovering/Resolving]
  - Pruritus [Recovering/Resolving]
  - Drug ineffective [Unknown]
  - Dry skin [Unknown]

NARRATIVE: CASE EVENT DATE: 20210512
